FAERS Safety Report 15832058 (Version 1)
Quarter: 2019Q1

REPORT INFORMATION
  Report Type: Report from Study
  Country: US (occurrence: US)
  Receive Date: 20190116
  Receipt Date: 20190116
  Transmission Date: 20190417
  Serious: Yes (Hospitalization)
  Sender: FDA-Public Use
  Company Number: US-SA-2019SA010524

PATIENT
  Age: 48 Year
  Sex: Male

DRUGS (1)
  1. LIXISENATIDE [Suspect]
     Active Substance: LIXISENATIDE
     Dosage: UNK
     Dates: start: 20000101

REACTIONS (2)
  - Hospitalisation [Unknown]
  - Wound secretion [Unknown]

NARRATIVE: CASE EVENT DATE: 20190108
